FAERS Safety Report 4907867-9 (Version None)
Quarter: 2006Q1

REPORT INFORMATION
  Report Type: 
  Country: None (occurrence: None)
  Receive Date: 20060210
  Receipt Date: 20060206
  Transmission Date: 20060701
  Serious: Yes (Hospitalization)
  Sender: FDA-Public Use
  Company Number: JP-SOLVAY-00306000418

PATIENT
  Age: 74 Year
  Sex: Female

DRUGS (10)
  1. LUVOX [Suspect]
     Indication: DEPRESSION
     Dosage: DAILY DOSE: 50 MILLIGRAM(S)
     Route: 048
     Dates: start: 20060120, end: 20060122
  2. LUVOX [Suspect]
     Dosage: DAILY DOSE: 100 MILLIGRAM(S)
     Route: 048
     Dates: start: 20060123
  3. MAGNESIUM OXIDE [Concomitant]
     Indication: ILL-DEFINED DISORDER
     Dosage: DAILY DOSE:  UNKNOWN
     Route: 048
  4. JUVELA NICOTINATE [Concomitant]
     Indication: ILL-DEFINED DISORDER
     Dosage: DAILY DOSE:  UNKNOWN
     Route: 048
  5. LEXOTAN [Suspect]
     Indication: ILL-DEFINED DISORDER
     Dosage: DAILY DOSE: 10 MILLIGRAM(S)
     Route: 048
     Dates: start: 20060123, end: 20060203
  6. AMOBAN [Suspect]
     Indication: ILL-DEFINED DISORDER
     Dosage: DAILY DOSE: 7.5 MILLIGRAM(S)
     Route: 048
     Dates: start: 20060120
  7. GASTER [Concomitant]
     Indication: ILL-DEFINED DISORDER
     Dosage: DAILY DOSE:  UNKNOWN
     Route: 065
  8. SEROQUEL [Suspect]
     Indication: ILL-DEFINED DISORDER
     Dosage: DAILY DOSE: 25 MILLIGRAM(S)
     Route: 048
     Dates: start: 20060120, end: 20060123
  9. SEROQUEL [Suspect]
     Dosage: DAILY DOSE: 12.5 MILLIGRAM(S)
     Route: 048
     Dates: start: 20060123, end: 20060203
  10. LENDORMIN [Suspect]
     Indication: ILL-DEFINED DISORDER
     Dosage: DAILY DOSE: .25 MILLIGRAM(S)
     Route: 048
     Dates: start: 20060203

REACTIONS (1)
  - GLAUCOMA [None]
